FAERS Safety Report 14183626 (Version 3)
Quarter: 2018Q1

REPORT INFORMATION
  Report Type: Report from Study
  Country: JP (occurrence: JP)
  Receive Date: 20171113
  Receipt Date: 20180127
  Transmission Date: 20180508
  Serious: Yes (Hospitalization, Other)
  Sender: FDA-Public Use
  Company Number: JP-AMGEN-JPNSP2017169740

PATIENT
  Age: 61 Year
  Sex: Female
  Weight: 48 kg

DRUGS (10)
  1. LIVALO [Concomitant]
     Active Substance: PITAVASTATIN CALCIUM
     Dosage: 1 MG, QD
     Dates: start: 20170104
  2. BILASTINE [Concomitant]
     Active Substance: BILASTINE
     Indication: PROPHYLAXIS
     Dosage: UNK
     Route: 048
     Dates: start: 20170301
  3. PROBUCOL [Concomitant]
     Active Substance: PROBUCOL
     Dosage: 500 MG, QD
     Dates: start: 20170301
  4. BIO-THREE [Concomitant]
     Active Substance: HERBALS
     Indication: PROPHYLAXIS
     Dosage: UNK
     Route: 048
  5. EFIENT [Concomitant]
     Active Substance: PRASUGREL HYDROCHLORIDE
     Dosage: UNK
     Route: 048
     Dates: start: 20171030
  6. COMPLAVIN [Concomitant]
     Active Substance: ASPIRIN\CLOPIDOGREL BISULFATE
     Dosage: UNK
     Route: 048
     Dates: start: 20171030
  7. EPAROSE [Concomitant]
     Dosage: 1800 MG, QD
     Dates: start: 20170301
  8. ENALAPRIL [Concomitant]
     Active Substance: ENALAPRIL
     Dosage: UNK
     Route: 048
     Dates: start: 20171030
  9. EVOLOCUMAB [Suspect]
     Active Substance: EVOLOCUMAB
     Indication: TYPE IIA HYPERLIPIDAEMIA
     Dosage: 140 MG, Q2WK
     Route: 058
     Dates: start: 20161207
  10. CARVEDILOL. [Concomitant]
     Active Substance: CARVEDILOL
     Dosage: UNK
     Route: 048
     Dates: start: 20171030

REACTIONS (1)
  - Myocardial infarction [Recovering/Resolving]

NARRATIVE: CASE EVENT DATE: 20171023
